FAERS Safety Report 7633834-0 (Version None)
Quarter: 2011Q3

REPORT INFORMATION
  Report Type: 
  Country: None (occurrence: None)
  Receive Date: 20110714
  Receipt Date: 20100715
  Transmission Date: 20111222
  Serious: Yes (Other)
  Sender: FDA-Public Use
  Company Number: 2010SP039171

PATIENT
  Sex: Male

DRUGS (2)
  1. INTEGRILIN [Suspect]
     Indication: CHEST PAIN
     Dosage: IV
     Route: 042
     Dates: start: 20100714, end: 20100714
  2. PLAVIX [Concomitant]

REACTIONS (1)
  - EPISTAXIS [None]
